FAERS Safety Report 13857409 (Version 2)
Quarter: 2017Q3

REPORT INFORMATION
  Report Type: Spontaneous
  Country: RO (occurrence: RO)
  Receive Date: 20170810
  Receipt Date: 20170924
  Transmission Date: 20171127
  Serious: Yes (Hospitalization)
  Sender: FDA-Public Use
  Company Number: PHHY2017RO114614

PATIENT
  Age: 69 Year
  Sex: Male

DRUGS (2)
  1. PAZOPANIB [Suspect]
     Active Substance: PAZOPANIB
     Indication: MYXOFIBROSARCOMA
     Dosage: 800 MG, QD
     Route: 048
     Dates: start: 20170730, end: 20170731
  2. NOLIPREL [Concomitant]
     Indication: PRODUCT USED FOR UNKNOWN INDICATION
     Dosage: UNK
     Route: 048

REACTIONS (6)
  - Respiratory failure [Recovered/Resolved]
  - Lung infiltration [Unknown]
  - Hypertension [Unknown]
  - Pneumonia [Recovering/Resolving]
  - Dyspnoea [Unknown]
  - Product use in unapproved indication [Unknown]

NARRATIVE: CASE EVENT DATE: 20170730
